FAERS Safety Report 14201040 (Version 2)
Quarter: 2017Q4

REPORT INFORMATION
  Report Type: Spontaneous
  Country: US (occurrence: US)
  Receive Date: 20171117
  Receipt Date: 20171208
  Transmission Date: 20180321
  Serious: No
  Sender: FDA-Public Use
  Company Number: US-NOVOPROD-563630

PATIENT
  Age: 69 Year
  Sex: Female

DRUGS (2)
  1. NOVOLOG [Suspect]
     Active Substance: INSULIN ASPART
     Indication: DIABETES MELLITUS
     Dosage: 30 U BREAKFAST, 12 U LUNCH, 10 U DINNER
     Route: 058
  2. NOVOLIN N [Suspect]
     Active Substance: INSULIN HUMAN
     Indication: DIABETES MELLITUS
     Dosage: 24 U, QD
     Route: 058
     Dates: start: 20170707, end: 20170709

REACTIONS (8)
  - Hypersensitivity [Recovered/Resolved]
  - Blood glucose increased [Recovered/Resolved]
  - Oral discomfort [Recovered/Resolved]
  - Nausea [Recovered/Resolved]
  - Oral disorder [Recovered/Resolved]
  - Dizziness [Recovered/Resolved]
  - Dysgeusia [Recovered/Resolved]
  - Gait disturbance [Recovered/Resolved]

NARRATIVE: CASE EVENT DATE: 20170707
